FAERS Safety Report 10203529 (Version 1)
Quarter: 2014Q2

REPORT INFORMATION
  Report Type: Report from Study
  Country: US (occurrence: US)
  Receive Date: 20140529
  Receipt Date: 20140529
  Transmission Date: 20141212
  Serious: Yes (Hospitalization)
  Sender: FDA-Public Use
  Company Number: US-PURDUE-USA-2014-0114264

PATIENT
  Age: 38 Year
  Sex: Female

DRUGS (2)
  1. OXY CR TAB [Suspect]
     Indication: BACK PAIN
     Dosage: 40 MG, BID
     Route: 048
     Dates: start: 20140417
  2. OXY CR TAB [Suspect]
     Indication: NEURITIS

REACTIONS (2)
  - Ligament sprain [Unknown]
  - Fall [Unknown]
